FAERS Safety Report 4630605-4 (Version None)
Quarter: 2005Q2

REPORT INFORMATION
  Report Type: 
  Country: None (occurrence: None)
  Receive Date: 20050406
  Receipt Date: 20050328
  Transmission Date: 20051028
  Serious: Yes (Other)
  Sender: FDA-Public Use
  Company Number: 200416365BCC

PATIENT
  Age: 69 Year
  Sex: Male
  Weight: 97.5234 kg

DRUGS (6)
  1. ALEVE [Suspect]
     Indication: ARTHRALGIA
     Dosage: 200 MG, BID, ORAL
     Route: 048
     Dates: start: 20041026, end: 20041215
  2. DIOVAN [Concomitant]
  3. LIPITOR [Concomitant]
  4. METOPROLOL TARTRATE [Concomitant]
  5. LASIX [Concomitant]
  6. COREG [Concomitant]

REACTIONS (6)
  - BLOOD PRESSURE INCREASED [None]
  - CARDIAC FAILURE CONGESTIVE [None]
  - CARDIAC PACEMAKER INSERTION [None]
  - CARDIOMYOPATHY [None]
  - DIFFICULTY IN WALKING [None]
  - PERICARDIAL EFFUSION [None]
